FAERS Safety Report 21010915 (Version 3)
Quarter: 2022Q3

REPORT INFORMATION
  Report Type: Spontaneous
  Country: CN (occurrence: CN)
  Receive Date: 20220627
  Receipt Date: 20220810
  Transmission Date: 20221027
  Serious: Yes (Hospitalization, Other)
  Sender: FDA-Public Use
  Company Number: CN-PFIZER INC-PV202200007797

PATIENT
  Age: 91 Year
  Sex: Female

DRUGS (10)
  1. AVIBACTAM SODIUM\CEFTAZIDIME [Suspect]
     Active Substance: AVIBACTAM SODIUM\CEFTAZIDIME
     Indication: Pneumonia
     Dosage: 1.25 G, 2X/DAY
     Route: 041
     Dates: start: 20220518, end: 20220525
  2. ZYVOX [Suspect]
     Active Substance: LINEZOLID
     Indication: Pneumonia
     Dosage: 0.6 G, 2X/DAY
     Route: 048
     Dates: start: 20220518, end: 20220525
  3. LINAGLIPTIN [Concomitant]
     Active Substance: LINAGLIPTIN
     Indication: Blood glucose increased
     Dosage: 5 MG, 1X/DAY
     Route: 045
     Dates: start: 20220518, end: 20220525
  4. IRON POLYSACCHARIDE COMPLEX [Concomitant]
     Indication: Anaemia
     Dosage: 0.15 MG, 1X/DAY
     Route: 045
     Dates: start: 20220518, end: 20220525
  5. PROTEIN HYDROLYSATE [Concomitant]
     Active Substance: PROTEIN HYDROLYSATE
     Indication: Hypoproteinaemia
     Dosage: 30 ML, 3X/DAY
     Route: 045
     Dates: start: 20220518, end: 20220525
  6. ESOMEPRAZOLE SODIUM [Concomitant]
     Active Substance: ESOMEPRAZOLE SODIUM
     Indication: Antacid therapy
     Dosage: 40 MG, 1X/DAY
     Route: 042
     Dates: start: 20220518, end: 20220525
  7. INSULIN GLARGINE [Concomitant]
     Active Substance: INSULIN GLARGINE
     Indication: Blood glucose increased
     Dosage: 32 IU, 1X/DAY
     Route: 058
     Dates: start: 20220518, end: 20220525
  8. COENZYME Q10 [Concomitant]
     Active Substance: DIETARY SUPPLEMENT\UBIDECARENONE
     Indication: Metabolic cardiomyopathy
     Dosage: 10 MG, 33X/DAY
     Route: 045
     Dates: start: 20220518, end: 20220525
  9. BACILLUS MESENTERICUS/CLOSTRIDIUM BUTYRICUM/ENTEROCOCCUS FAECALIS [Concomitant]
     Indication: Dysbiosis
     Dosage: 400 MG, 3X/DAY
     Route: 045
     Dates: start: 20220518, end: 20220525
  10. FENOFIBRATE [Concomitant]
     Active Substance: FENOFIBRATE
     Indication: Lipids increased
     Dosage: 0.2 G, 1X/DAY
     Route: 045
     Dates: start: 20220518, end: 20220525

REACTIONS (4)
  - Renal impairment [Not Recovered/Not Resolved]
  - Drug ineffective [Unknown]
  - Body temperature fluctuation [Unknown]
  - Heart rate abnormal [Unknown]

NARRATIVE: CASE EVENT DATE: 20220501
